FAERS Safety Report 7686616-8 (Version None)
Quarter: 2011Q3

REPORT INFORMATION
  Report Type: 
  Country: None (occurrence: None)
  Receive Date: 20110816
  Receipt Date: 20110816
  Transmission Date: 20111222
  Serious: Yes (Hospitalization)
  Sender: FDA-Public Use
  Company Number: None

PATIENT
  Age: 22 Year
  Sex: Female
  Weight: 48 kg

DRUGS (1)
  1. NIFEDIPINE [Suspect]
     Indication: TOCOLYSIS
     Dosage: 30 MG
     Route: 048
     Dates: start: 20110801, end: 20110802

REACTIONS (6)
  - OXYGEN SATURATION DECREASED [None]
  - PULMONARY OEDEMA [None]
  - CHEST PAIN [None]
  - TACHYCARDIA [None]
  - DYSPNOEA [None]
  - PNEUMONIA [None]
